FAERS Safety Report 8920042 (Version 1)
Quarter: 2012Q4

REPORT INFORMATION
  Report Type: 
  Country: US (occurrence: US)
  Receive Date: 20121121
  Receipt Date: 20121121
  Transmission Date: 20130627
  Serious: No
  Sender: FDA-Public Use
  Company Number: US-BRISTOL-MYERS SQUIBB COMPANY-16569238

PATIENT
  Age: 66 Year
  Sex: Female
  Weight: 95.24 kg

DRUGS (1)
  1. AVALIDE TABS 150MG/12.5MG [Suspect]
     Dosage: Duration:8years

REACTIONS (2)
  - Headache [Unknown]
  - Blood pressure increased [Unknown]
